FAERS Safety Report 10636480 (Version 1)
Quarter: 2014Q4

REPORT INFORMATION
  Report Type: Spontaneous
  Country: US (occurrence: US)
  Receive Date: 20141207
  Receipt Date: 20141207
  Transmission Date: 20150529
  Serious: No
  Sender: FDA-Public Use
  Company Number: US-GLAXOSMITHKLINE-A1088292A

PATIENT

DRUGS (21)
  1. IRBESARTAN. [Concomitant]
     Active Substance: IRBESARTAN
  2. MAGNESIUM [Concomitant]
     Active Substance: MAGNESIUM
  3. MUPIROCIN. [Concomitant]
     Active Substance: MUPIROCIN
  4. BREO ELLIPTA [Suspect]
     Active Substance: FLUTICASONE FUROATE\VILANTEROL TRIFENATATE
     Indication: EMPHYSEMA
     Route: 055
     Dates: start: 20140828, end: 20140906
  5. DORZOLAMIDE [Concomitant]
     Active Substance: DORZOLAMIDE
  6. FUROSEMIDE. [Concomitant]
     Active Substance: FUROSEMIDE
  7. LOTRIMIN [Concomitant]
     Active Substance: CLOTRIMAZOLE
  8. AZELASTINE [Concomitant]
     Active Substance: AZELASTINE
  9. DILTIAZEM HYDROCHLORIDE EXTENDED RELEASE [Concomitant]
     Active Substance: DILTIAZEM HYDROCHLORIDE
  10. POTASSIUM [Concomitant]
     Active Substance: POTASSIUM
  11. ZOLOFT [Concomitant]
     Active Substance: SERTRALINE HYDROCHLORIDE
  12. ANTIFUNGAL TREATMENT [Concomitant]
  13. LEVOXYL [Concomitant]
     Active Substance: LEVOTHYROXINE SODIUM
  14. CALCIUM D [Concomitant]
     Active Substance: CALCIUM\VITAMIN D
  15. WARFARIN [Concomitant]
     Active Substance: WARFARIN
  16. TYLENOL [Concomitant]
     Active Substance: ACETAMINOPHEN
  17. PROBIOTIC [Concomitant]
     Active Substance: PROBIOTICS NOS
  18. FLOVENT [Suspect]
     Active Substance: FLUTICASONE PROPIONATE
     Indication: EMPHYSEMA
     Route: 055
  19. ALPRAZOLAM. [Concomitant]
     Active Substance: ALPRAZOLAM
  20. LOVASTATIN. [Concomitant]
     Active Substance: LOVASTATIN
  21. LATANOPROST. [Concomitant]
     Active Substance: LATANOPROST

REACTIONS (8)
  - Diarrhoea [Recovering/Resolving]
  - Cough [Recovering/Resolving]
  - Intraocular pressure increased [Recovering/Resolving]
  - Feeling cold [Recovering/Resolving]
  - Asthenia [Recovering/Resolving]
  - Headache [Recovering/Resolving]
  - Dyspnoea [Recovering/Resolving]
  - Feeling abnormal [Recovering/Resolving]
